FAERS Safety Report 4718047-4 (Version None)
Quarter: 2005Q3

REPORT INFORMATION
  Report Type: 
  Country: None (occurrence: None)
  Receive Date: 20050718
  Receipt Date: 20050404
  Transmission Date: 20060218
  Serious: No
  Sender: FDA-Public Use
  Company Number: 2005000676

PATIENT
  Age: 76 Year
  Sex: Male
  Weight: 85.7298 kg

DRUGS (1)
  1. TARCEVA [Suspect]
     Indication: NON-SMALL CELL LUNG CANCER
     Dosage: 150 MG (QD), ORAL
     Route: 048
     Dates: start: 20050304

REACTIONS (7)
  - CONJUNCTIVITIS [None]
  - COUGH [None]
  - DYSPNOEA [None]
  - LACRIMATION INCREASED [None]
  - PRURITUS [None]
  - RASH [None]
  - RHINORRHOEA [None]
